FAERS Safety Report 6429112-8 (Version None)
Quarter: 2009Q4

REPORT INFORMATION
  Report Type: 
  Country: None (occurrence: None)
  Receive Date: 20091105
  Receipt Date: 20091022
  Transmission Date: 20100525
  Serious: Yes (Other)
  Sender: FDA-Public Use
  Company Number: BR-PFIZER INC-2009246606

PATIENT
  Age: 33 Year
  Sex: Female
  Weight: 42 kg

DRUGS (6)
  1. ZOLOFT [Suspect]
     Indication: BIPOLAR DISORDER
     Dosage: 50 MG, UNK
     Route: 048
     Dates: start: 20090701
  2. BUPROPION [Suspect]
     Dosage: 300 MG, UNK
     Dates: start: 20090701
  3. CLONAZEPAM [Concomitant]
     Dosage: 2 MG, UNK
  4. LAMOTRIGINE [Concomitant]
     Dosage: 25 MG, UNK
     Dates: start: 20090501
  5. TRILEPTAL [Concomitant]
     Dosage: UNK
     Dates: start: 20090501
  6. ESTAZOLAM [Concomitant]
     Dosage: UNK
     Dates: start: 20090401

REACTIONS (3)
  - DEPRESSION [None]
  - DRUG INEFFECTIVE [None]
  - SPEECH DISORDER [None]
